FAERS Safety Report 11394195 (Version 1)
Quarter: 2015Q3

REPORT INFORMATION
  Report Type: Spontaneous
  Country: US (occurrence: None)
  Receive Date: 20150817
  Receipt Date: 20150817
  Transmission Date: 20151125
  Serious: Yes (Disabling)
  Sender: FDA-Public Use
  Company Number: None

PATIENT
  Age: 57 Year
  Sex: Female
  Weight: 90.72 kg

DRUGS (11)
  1. TRAMADOL 50 MG [Suspect]
     Active Substance: TRAMADOL
     Indication: JOINT INJURY
     Dosage: 1 PILL EVERY 4 HOURS AS NEEDED
     Route: 048
  2. QVAR [Concomitant]
     Active Substance: BECLOMETHASONE DIPROPIONATE
  3. ESTRODIAL [Concomitant]
  4. TESTOSTERONE. [Concomitant]
     Active Substance: TESTOSTERONE
  5. TRAMADOL 50 MG [Suspect]
     Active Substance: TRAMADOL
     Indication: PULMONARY PAIN
     Dosage: 1 PILL EVERY 4 HOURS AS NEEDED
     Route: 048
  6. VITAMIN B12 [Concomitant]
     Active Substance: CYANOCOBALAMIN
  7. EXCEDERINE [Concomitant]
  8. CENTRUIM [Concomitant]
  9. VYVANSE [Concomitant]
     Active Substance: LISDEXAMFETAMINE DIMESYLATE
  10. VITAMIN D [Concomitant]
     Active Substance: CHOLECALCIFEROL
  11. VENTOLIN [Concomitant]
     Active Substance: ALBUTEROL SULFATE

REACTIONS (6)
  - Hot flush [None]
  - Hypertension [None]
  - Treatment noncompliance [None]
  - Oropharyngeal pain [None]
  - Swelling face [None]
  - Peripheral swelling [None]

NARRATIVE: CASE EVENT DATE: 20150806
